FAERS Safety Report 19714975 (Version 1)
Quarter: 2021Q3

REPORT INFORMATION
  Report Type: Report from Study
  Country: US (occurrence: US)
  Receive Date: 20210818
  Receipt Date: 20210818
  Transmission Date: 20211014
  Serious: Yes (Other)
  Sender: FDA-Public Use
  Company Number: US-PTC THERAPEUTICS, INC.-US-2021PTC000981

PATIENT

DRUGS (2)
  1. EMFLAZA [Suspect]
     Active Substance: DEFLAZACORT
     Dosage: 72 MG ON SATURDAY AND SUNDAY
     Route: 065
  2. EMFLAZA [Suspect]
     Active Substance: DEFLAZACORT
     Indication: PRODUCT USED FOR UNKNOWN INDICATION
     Dosage: 144 MG ON SATURDAY AND SUNDAY
     Route: 065

REACTIONS (4)
  - Weight abnormal [Recovering/Resolving]
  - Hot flush [Recovering/Resolving]
  - Hyperhidrosis [Recovering/Resolving]
  - Off label use [Unknown]
